FAERS Safety Report 16443786 (Version 1)
Quarter: 2019Q2

REPORT INFORMATION
  Report Type: Spontaneous
  Country: FR (occurrence: FR)
  Receive Date: 20190618
  Receipt Date: 20190618
  Transmission Date: 20190711
  Serious: Yes (Hospitalization)
  Sender: FDA-Public Use
  Company Number: FR-TEVA-2019-FR-1063302

PATIENT
  Age: 75 Year
  Sex: Female
  Weight: 68 kg

DRUGS (6)
  1. LASILIX 40 MG, SCORED TABLET [Concomitant]
     Active Substance: FUROSEMIDE
     Route: 048
  2. VANCOMYCINE [Suspect]
     Active Substance: VANCOMYCIN
     Indication: ARTHRITIS INFECTIVE
     Dosage: 1 GRAM DAILY;
     Route: 042
     Dates: start: 20190123, end: 20190306
  3. XATRAL LP 10 MG PROLONGED-RELEASE TABLET [Concomitant]
     Route: 048
  4. CEFTAZIDIME. [Suspect]
     Active Substance: CEFTAZIDIME
     Indication: ARTHRITIS INFECTIVE
     Dosage: 2 GRAM DAILY;
     Route: 042
     Dates: start: 20190123, end: 20190306
  5. DIFFU K [Concomitant]
     Active Substance: POTASSIUM CHLORIDE
     Route: 048
  6. CALCIPARINE [Concomitant]
     Active Substance: HEPARIN CALCIUM
     Route: 058

REACTIONS (1)
  - Acute kidney injury [Recovered/Resolved]

NARRATIVE: CASE EVENT DATE: 20190225
